FAERS Safety Report 19715425 (Version 1)
Quarter: 2021Q3

REPORT INFORMATION
  Report Type: Spontaneous
  Country: JP (occurrence: JP)
  Receive Date: 20210818
  Receipt Date: 20210818
  Transmission Date: 20211014
  Serious: Yes (Hospitalization, Other)
  Sender: FDA-Public Use
  Company Number: JP-SCIEGENPHARMA-2021SCILIT00672

PATIENT
  Age: 72 Year
  Sex: Male

DRUGS (3)
  1. QUETIAPINE. [Suspect]
     Active Substance: QUETIAPINE
     Indication: STEREOTYPY
     Route: 065
  2. GALANTAMINE. [Interacting]
     Active Substance: GALANTAMINE
     Route: 065
  3. CLONAZEPAM. [Concomitant]
     Active Substance: CLONAZEPAM
     Indication: STEREOTYPY
     Route: 065

REACTIONS (1)
  - Dementia Alzheimer^s type [Unknown]
